FAERS Safety Report 22236093 (Version 1)
Quarter: 2023Q2

REPORT INFORMATION
  Report Type: Spontaneous
  Country: US (occurrence: US)
  Receive Date: 20230420
  Receipt Date: 20230420
  Transmission Date: 20230721
  Serious: No
  Sender: FDA-Public Use
  Company Number: US-PFIZER INC-202300159938

PATIENT
  Age: 65 Year
  Sex: Female
  Weight: 92.08 kg

DRUGS (1)
  1. NURTEC ODT [Suspect]
     Active Substance: RIMEGEPANT SULFATE
     Indication: Migraine
     Dosage: UNK
     Route: 060

REACTIONS (3)
  - Reaction to excipient [Unknown]
  - Nausea [Unknown]
  - Intentional product misuse [Unknown]
